FAERS Safety Report 7542125-8 (Version None)
Quarter: 2011Q2

REPORT INFORMATION
  Report Type: 
  Country: None (occurrence: None)
  Receive Date: 20110524
  Receipt Date: 20110310
  Transmission Date: 20111010
  Serious: No
  Sender: FDA-Public Use
  Company Number: 029117

PATIENT
  Sex: Female
  Weight: 53.9 kg

DRUGS (3)
  1. METHOTREXATE [Concomitant]
  2. ANTACID /01054901/ [Concomitant]
  3. CIMZIA [Suspect]
     Indication: RHEUMATOID ARTHRITIS
     Dosage: (2 SHOTS SUBCUTANEOUS)
     Route: 058
     Dates: start: 20110201

REACTIONS (3)
  - PARAESTHESIA [None]
  - DIZZINESS [None]
  - GASTROOESOPHAGEAL REFLUX DISEASE [None]
